FAERS Safety Report 18339714 (Version 1)
Quarter: 2020Q4

REPORT INFORMATION
  Report Type: Spontaneous
  Country: IT (occurrence: IT)
  Receive Date: 20201002
  Receipt Date: 20201002
  Transmission Date: 20210113
  Serious: Yes (Other)
  Sender: FDA-Public Use
  Company Number: IT-SAMSUNG BIOEPIS-SB-2020-29563

PATIENT
  Age: 43 Year
  Sex: Female
  Weight: 78 kg

DRUGS (3)
  1. MESAVANCOL [Concomitant]
     Active Substance: MESALAMINE
     Indication: PRODUCT USED FOR UNKNOWN INDICATION
     Dosage: GASTRORESISTANT TABLETS, PROLONGED RELEASE
     Route: 048
  2. FLIXABI [Suspect]
     Active Substance: INFLIXIMAB
     Indication: ENTEROPATHIC SPONDYLITIS
     Dosage: POWDER FOR CONCENTRATE FOR DISPERSION FOR INFUSION
     Route: 042
     Dates: start: 20190301, end: 20191210
  3. URBASON [Concomitant]
     Active Substance: METHYLPREDNISOLONE
     Indication: PREMEDICATION
     Dosage: SOLUBLE
     Route: 042
     Dates: start: 20191210, end: 20191210

REACTIONS (5)
  - Erythema [Recovered/Resolved]
  - Asthenia [Recovered/Resolved]
  - Chest discomfort [Recovered/Resolved]
  - Infusion related reaction [Recovered/Resolved]
  - Product use in unapproved indication [Unknown]

NARRATIVE: CASE EVENT DATE: 20191210
